FAERS Safety Report 4822804-3 (Version None)
Quarter: 2005Q4

REPORT INFORMATION
  Report Type: 
  Country: None (occurrence: None)
  Receive Date: 20051108
  Receipt Date: 20050711
  Transmission Date: 20060501
  Serious: Yes (Other)
  Sender: FDA-Public Use
  Company Number: US-ROCHE-410576

PATIENT
  Age: 76 Year
  Sex: Male
  Weight: 68.5 kg

DRUGS (5)
  1. XELODA [Suspect]
     Indication: COLON CANCER
     Route: 048
     Dates: start: 20040514, end: 20040930
  2. COZAAR [Concomitant]
     Route: 048
  3. LIPITOR [Concomitant]
  4. SINEMET [Concomitant]
  5. VITAMIN B6 [Concomitant]

REACTIONS (1)
  - REFRACTORY ANAEMIA WITH RINGED SIDEROBLASTS [None]
